FAERS Safety Report 9229018 (Version 4)
Quarter: 2014Q2

REPORT INFORMATION
  Report Type: Spontaneous
  Country: ES (occurrence: ES)
  Receive Date: 20130412
  Receipt Date: 20140416
  Transmission Date: 20141212
  Serious: Yes (Life-Threatening, Hospitalization, Other)
  Sender: FDA-Public Use
  Company Number: ES-VERTEX PHARMACEUTICALS INC.-2013-004845

PATIENT
  Age: 47 Year
  Sex: Male
  Weight: 85 kg

DRUGS (16)
  1. INCIVO [Suspect]
     Indication: HEPATITIS C
     Dosage: 750 MG, TID
     Route: 048
     Dates: start: 20130208, end: 20130329
  2. RIBAVIRIN [Suspect]
     Indication: HEPATITIS C
     Dosage: DOSAGE FORM: UNSPECIFIED
     Route: 048
     Dates: start: 20130208
  3. RIBAVIRIN [Suspect]
     Dosage: DOSAGE FORM: UNSPECIFIED
     Route: 048
     Dates: end: 20130329
  4. RIBAVIRIN [Suspect]
     Dosage: DOSAGE FORM: UNSPECIFIED
     Route: 048
  5. RIBAVIRIN [Suspect]
     Dosage: DOSAGE FORM: UNSPECIFIED
     Route: 048
  6. RIBAVIRIN [Suspect]
     Dosage: DOSAGE FORM: UNSPECIFIED
     Route: 048
     Dates: end: 20130329
  7. PEGINTERFERON ALFA [Suspect]
     Indication: HEPATITIS C
     Dosage: DOSAGE FORM: UNSPECIFIED
     Route: 048
     Dates: start: 20120507
  8. PEGINTERFERON ALFA [Suspect]
     Dosage: DOSAGE FORM: UNSPECIFIED
     Route: 048
  9. PEGINTERFERON ALFA [Suspect]
     Dosage: DOSAGE FORM: UNSPECIFIED
     Route: 048
     Dates: start: 20130208, end: 20130329
  10. PEGINTERFERON ALFA [Suspect]
     Dosage: DOSAGE FORM: UNSPECIFIED
     Route: 048
  11. LACTULOSA [Concomitant]
     Indication: CONSTIPATION
     Dosage: DOSAGE FORM: UNSPECIFIED
     Route: 048
     Dates: start: 2012
  12. LACTULOSA [Concomitant]
     Indication: PROPHYLAXIS
  13. MACROGOL [Concomitant]
     Indication: PORTAL HYPERTENSION
     Dosage: DOSAGE FORM: UNSPECIFIED
     Route: 048
     Dates: start: 2012
  14. MACROGOL [Concomitant]
     Indication: PROPHYLAXIS
  15. PLANTAGO OVATA [Concomitant]
     Indication: CONSTIPATION
     Dosage: DOSAGE FORM: UNSPECIFIED
     Route: 048
     Dates: start: 2012
  16. PLANTAGO OVATA [Concomitant]
     Indication: PROPHYLAXIS

REACTIONS (27)
  - Infectious thyroiditis [Recovered/Resolved]
  - Leukopenia [Recovered/Resolved]
  - Goitre [Recovered/Resolved]
  - Staphylococcal infection [Recovered/Resolved]
  - Renal impairment [Recovered/Resolved]
  - Rales [Recovered/Resolved]
  - Bacterial test positive [Recovered/Resolved]
  - Jaundice [Recovered/Resolved]
  - Anaemia [Recovered/Resolved]
  - Haemoptysis [Recovered/Resolved]
  - Dyspnoea [Recovered/Resolved]
  - Orthopnoea [Recovered/Resolved]
  - Oedema [Recovered/Resolved]
  - Odynophagia [Recovered/Resolved]
  - Tachycardia [Recovered/Resolved]
  - Hypoventilation [Recovered/Resolved]
  - Dry skin [Recovered/Resolved]
  - Dermatitis allergic [Recovered/Resolved]
  - Skin lesion [Recovered/Resolved]
  - Myalgia [Recovered/Resolved]
  - Pyrexia [Recovered/Resolved]
  - Dry mouth [Recovered/Resolved]
  - Tremor [Recovered/Resolved]
  - Malaise [Recovered/Resolved]
  - Generalised erythema [Recovered/Resolved]
  - Pruritus generalised [Recovered/Resolved]
  - Drug effect decreased [Unknown]
